FAERS Safety Report 9740914 (Version 1)
Quarter: 2013Q4

REPORT INFORMATION
  Report Type: Spontaneous
  Country: US (occurrence: US)
  Receive Date: 20131209
  Receipt Date: 20131209
  Transmission Date: 20140711
  Serious: No
  Sender: FDA-Public Use
  Company Number: US-BIOGENIDEC-2013BI099651

PATIENT
  Age: 64 Year
  Sex: Female
  Weight: 106 kg

DRUGS (16)
  1. TECFIDERA [Suspect]
     Indication: MULTIPLE SCLEROSIS
     Route: 048
     Dates: start: 20130924
  2. GLIPIZIDE ER [Concomitant]
  3. TOPAMAX [Concomitant]
  4. IMITREX [Concomitant]
  5. LANTUS [Concomitant]
  6. NOVOLOG [Concomitant]
  7. LOSARTAN POT [Concomitant]
  8. PROTONIX [Concomitant]
  9. LUMIGAN [Concomitant]
  10. MECLIZINE [Concomitant]
  11. SYNTHROID [Concomitant]
  12. PRAVACHOL [Concomitant]
  13. COLACE [Concomitant]
  14. SECTRAL [Concomitant]
  15. TIZANIDINE [Concomitant]
  16. VITAMIN D [Concomitant]

REACTIONS (2)
  - Migraine [Not Recovered/Not Resolved]
  - Headache [Unknown]
